FAERS Safety Report 5818419-0 (Version None)
Quarter: 2008Q3

REPORT INFORMATION
  Report Type: 
  Country: None (occurrence: None)
  Receive Date: 20080716
  Receipt Date: 20080701
  Transmission Date: 20090109
  Serious: Yes (Other)
  Sender: FDA-Public Use
  Company Number: 2008S1011558

PATIENT
  Sex: Female

DRUGS (5)
  1. OMEPRAZOLE [Suspect]
     Indication: ILL-DEFINED DISORDER
     Dates: end: 20080601
  2. PAROXETINE HCL [Suspect]
     Indication: DEPRESSION
     Dates: start: 20070101
  3. CLOZAPINE [Suspect]
     Indication: SCHIZOPHRENIA
     Dates: end: 20080601
  4. ARIPIPRAZOLE [Suspect]
     Indication: DRUG USE FOR UNKNOWN INDICATION
  5. VALPROIC ACID (CON.) [Concomitant]

REACTIONS (3)
  - NEUTROPENIA [None]
  - SALIVARY HYPERSECRETION [None]
  - SOMNOLENCE [None]
